FAERS Safety Report 7708658-6 (Version None)
Quarter: 2011Q3

REPORT INFORMATION
  Report Type: 
  Country: None (occurrence: None)
  Receive Date: 20110825
  Receipt Date: 20110819
  Transmission Date: 20111222
  Serious: Yes (Other)
  Sender: FDA-Public Use
  Company Number: PT-ABBOTT-11P-130-0847940-00

PATIENT
  Sex: Female
  Weight: 80 kg

DRUGS (4)
  1. MESALAMINE [Concomitant]
     Indication: CROHN'S DISEASE
     Route: 048
     Dates: start: 20090101, end: 20110101
  2. GASTROLIBER [Concomitant]
     Indication: DYSPNOEA
     Route: 048
     Dates: start: 20080101
  3. ESCITALOPRAM [Concomitant]
     Indication: DEPRESSION
     Route: 048
     Dates: start: 20070101, end: 20110101
  4. HUMIRA [Suspect]
     Indication: CROHN'S DISEASE
     Route: 058
     Dates: start: 20090101, end: 20110708

REACTIONS (4)
  - HYPOAESTHESIA [None]
  - AMAUROSIS [None]
  - BALANCE DISORDER [None]
  - MULTIPLE SCLEROSIS [None]
